FAERS Safety Report 8820401 (Version 5)
Quarter: 2014Q2

REPORT INFORMATION
  Report Type: Spontaneous
  Country: JP (occurrence: JP)
  Receive Date: 20121002
  Receipt Date: 20130927
  Transmission Date: 20141212
  Serious: Yes (Life-Threatening)
  Sender: FDA-Public Use
  Company Number: JP-009507513-1209JPN011645

PATIENT
  Sex: Male
  Weight: 2.38 kg

DRUGS (9)
  1. ESLAX [Suspect]
     Indication: NEUROMUSCULAR BLOCKING THERAPY
     Dosage: 3 MG, QD
     Route: 041
     Dates: start: 20120903, end: 20120903
  2. ESLAX [Suspect]
     Indication: GENERAL ANAESTHESIA
     Dosage: 1 MG, QD
     Route: 041
     Dates: start: 20120903, end: 20120903
  3. BRIDION [Suspect]
     Indication: NEUROMUSCULAR BLOCKADE REVERSAL
     Dosage: 20 MG, QD
     Route: 041
     Dates: start: 20120903
  4. SEVOFLURANE [Concomitant]
     Indication: GENERAL ANAESTHESIA
     Dosage: 21.3 ML, UNK
     Route: 055
     Dates: start: 20120903
  5. RAVONAL [Concomitant]
     Indication: GENERAL ANAESTHESIA
     Dosage: 13 MG, QD
     Route: 042
     Dates: start: 20120903
  6. FENTANYL [Concomitant]
     Indication: GENERAL ANAESTHESIA
     Dosage: 10 MICROGRAM, QD
     Route: 042
     Dates: start: 20120903
  7. FENTANYL [Concomitant]
     Dosage: 5 MICROGRAM, QD
     Route: 042
     Dates: start: 20120903
  8. ANAPEINE [Concomitant]
     Indication: GENERAL ANAESTHESIA
     Dosage: 2.2 ML, QD
     Route: 042
     Dates: start: 20120903
  9. SULBACILLIN [Concomitant]
     Indication: INFECTION PROPHYLAXIS
     Dosage: 120 MG, TID
     Route: 042
     Dates: start: 20120903

REACTIONS (2)
  - Respiratory arrest [Recovering/Resolving]
  - Recurrence of neuromuscular blockade [Unknown]
